FAERS Safety Report 14233335 (Version 3)
Quarter: 2023Q2

REPORT INFORMATION
  Report Type: Spontaneous
  Country: US (occurrence: US)
  Receive Date: 20171128
  Receipt Date: 20230505
  Transmission Date: 20230721
  Serious: No
  Sender: FDA-Public Use
  Company Number: US-BIOGEN-2017BI00487220

PATIENT
  Sex: Female

DRUGS (12)
  1. TECFIDERA [Suspect]
     Active Substance: DIMETHYL FUMARATE
     Indication: Multiple sclerosis
     Dosage: MAITNENANCE DOSE
     Route: 050
  2. TECFIDERA [Suspect]
     Active Substance: DIMETHYL FUMARATE
     Route: 050
     Dates: start: 20140604
  3. CYCLOBENZAPRINE HYDROCHLORIDE [Concomitant]
     Active Substance: CYCLOBENZAPRINE HYDROCHLORIDE
     Route: 050
  4. CLARITIN [Concomitant]
     Active Substance: LORATADINE
     Route: 050
  5. IBUPROFEN [Concomitant]
     Active Substance: IBUPROFEN
     Route: 050
  6. VITAMIN D3 [Concomitant]
     Active Substance: CHOLECALCIFEROL
     Route: 050
  7. VILAZODONE HYDROCHLORIDE [Concomitant]
     Active Substance: VILAZODONE HYDROCHLORIDE
     Route: 050
  8. FERROUS SULFATE [Concomitant]
     Active Substance: FERROUS SULFATE
     Route: 050
  9. SUNOSI [Concomitant]
     Active Substance: SOLRIAMFETOL
     Route: 050
  10. HYDROCHLOROTHIAZIDE\VALSARTAN [Concomitant]
     Active Substance: HYDROCHLOROTHIAZIDE\VALSARTAN
     Dosage: 160/12.5 MG
     Route: 050
  11. METHADONE HYDROCHLORIDE [Concomitant]
     Active Substance: METHADONE HYDROCHLORIDE
     Route: 050
  12. ALBUTEROL [Concomitant]
     Active Substance: ALBUTEROL
     Route: 050

REACTIONS (4)
  - Product dose omission issue [Unknown]
  - Fatigue [Unknown]
  - Migraine [Unknown]
  - Gastrointestinal disorder [Unknown]

NARRATIVE: CASE EVENT DATE: 20140101
